FAERS Safety Report 6527828-6 (Version None)
Quarter: 2010Q1

REPORT INFORMATION
  Report Type: 
  Country: None (occurrence: None)
  Receive Date: 20100105
  Receipt Date: 20100105
  Transmission Date: 20100710
  Serious: No
  Sender: FDA-Public Use
  Company Number: None

PATIENT
  Age: 57 Year
  Sex: Female
  Weight: 71.2147 kg

DRUGS (2)
  1. TYLENOL (CAPLET) [Suspect]
     Indication: ARTHRALGIA
     Dosage: 1300 MG EVERY 8 HOURS PO
     Route: 048
     Dates: start: 20091214, end: 20091228
  2. TYLENOL (CAPLET) [Suspect]
     Indication: BACK PAIN
     Dosage: 1300 MG EVERY 8 HOURS PO
     Route: 048
     Dates: start: 20091214, end: 20091228

REACTIONS (1)
  - ABDOMINAL PAIN UPPER [None]
